FAERS Safety Report 4679862-9 (Version None)
Quarter: 2005Q2

REPORT INFORMATION
  Report Type: 
  Country: None (occurrence: None)
  Receive Date: 20050602
  Receipt Date: 20050523
  Transmission Date: 20051028
  Serious: Yes (Other)
  Sender: FDA-Public Use
  Company Number: PHBS2005BE07550

PATIENT
  Age: 69 Year
  Sex: Female

DRUGS (2)
  1. AREDIA [Suspect]
     Dosage: 60 MG 6 WEEKLY
     Route: 042
  2. OSTEODIDRONEL [Concomitant]
     Dosage: 400 MG/D
     Route: 042

REACTIONS (12)
  - ABSCESS DRAINAGE [None]
  - ASEPTIC NECROSIS BONE [None]
  - BONE DISORDER [None]
  - CELLULITIS [None]
  - KLEBSIELLA INFECTION [None]
  - ORAL SOFT TISSUE DISORDER [None]
  - PRIMARY SEQUESTRUM [None]
  - SEQUESTRECTOMY [None]
  - SURGERY [None]
  - TOOTH EXTRACTION [None]
  - TOOTHACHE [None]
  - WOUND DEBRIDEMENT [None]
